FAERS Safety Report 9996195 (Version 1)
Quarter: 2014Q1

REPORT INFORMATION
  Report Type: Spontaneous
  Country: JP (occurrence: JP)
  Receive Date: 20140311
  Receipt Date: 20140311
  Transmission Date: 20141002
  Serious: Yes (Other)
  Sender: FDA-Public Use
  Company Number: JP-PFIZER INC-2014064047

PATIENT
  Age: 21 Year
  Sex: Male

DRUGS (5)
  1. METHYLPREDNISOLONE SODIUM SUCCINATE [Suspect]
     Dosage: 1000 MG, DAILY
  2. METHYLPREDNISOLONE SODIUM SUCCINATE [Suspect]
     Dosage: 1000 MG, DAILY
  3. PREDNISOLONE [Suspect]
     Dosage: 60 MG, DAILY
  4. CARPERITIDE [Concomitant]
     Dosage: AT 0.0125 MICROG/KG/MIN
  5. GAMMA GLOBULIN [Concomitant]
     Dosage: 5 G, DAILY FOR 4 DAYS
     Route: 042

REACTIONS (1)
  - Puncture site haemorrhage [Recovered/Resolved]
